FAERS Safety Report 7132079-0 (Version None)
Quarter: 2010Q4

REPORT INFORMATION
  Report Type: 
  Country: None (occurrence: None)
  Receive Date: 20101124
  Receipt Date: 20101124
  Transmission Date: 20110411
  Serious: Yes (Life-Threatening, Hospitalization)
  Sender: FDA-Public Use
  Company Number: None

PATIENT
  Age: 81 Year
  Sex: Female
  Weight: 72.57 kg

DRUGS (1)
  1. ACTIVASE [Suspect]
     Indication: ISCHAEMIC STROKE
     Dosage: 7MG BOLUS IV  ; 59MG/ML OVER 1 HOUR IV
     Route: 042
     Dates: start: 20101002

REACTIONS (2)
  - CONFUSIONAL STATE [None]
  - HAEMORRHAGE INTRACRANIAL [None]
